FAERS Safety Report 5805449-8 (Version None)
Quarter: 2008Q3

REPORT INFORMATION
  Report Type: 
  Country: None (occurrence: None)
  Receive Date: 20080708
  Receipt Date: 20080708
  Transmission Date: 20090109
  Serious: Yes (Life-Threatening)
  Sender: FDA-Public Use
  Company Number: None

PATIENT
  Sex: Female
  Weight: 83.0083 kg

DRUGS (1)
  1. PROPRANOLOL [Suspect]
     Indication: VENTRICULAR EXTRASYSTOLES
     Dosage: 1 CAPSULE DAILY PO
     Route: 048
     Dates: start: 20080408, end: 20080703

REACTIONS (5)
  - CHEST DISCOMFORT [None]
  - DRUG LEVEL DECREASED [None]
  - DYSPNOEA [None]
  - PHARMACEUTICAL PRODUCT COMPLAINT [None]
  - VENTRICULAR TACHYCARDIA [None]
